FAERS Safety Report 7668725-2 (Version None)
Quarter: 2011Q3

REPORT INFORMATION
  Report Type: 
  Country: None (occurrence: None)
  Receive Date: 20110803
  Receipt Date: 20110725
  Transmission Date: 20111222
  Serious: Yes (Life-Threatening)
  Sender: FDA-Public Use
  Company Number: 994146

PATIENT
  Age: 69 Year
  Sex: Female
  Weight: 48.5 kg

DRUGS (4)
  1. LIDOCAINE [Suspect]
     Indication: NEUROMUSCULAR BLOCKADE
     Dosage: 15 ML, INTRAVENOUS BOLUS
     Route: 040
  2. MIDAZOLAM HCL [Concomitant]
  3. FENTANYL CITRATE [Concomitant]
  4. BUPIVACAINE HCL [Suspect]
     Indication: NEUROMUSCULAR BLOCKADE
     Dosage: 20, 15 ML, INTRAVENOUS BOLUS
     Route: 040

REACTIONS (6)
  - METABOLIC ACIDOSIS [None]
  - ANAESTHETIC COMPLICATION [None]
  - NODAL ARRHYTHMIA [None]
  - DEPRESSED LEVEL OF CONSCIOUSNESS [None]
  - BLOOD PRESSURE DIASTOLIC DECREASED [None]
  - CARDIOTOXICITY [None]
